FAERS Safety Report 23059120 (Version 2)
Quarter: 2023Q4

REPORT INFORMATION
  Report Type: Report from Study
  Country: PH (occurrence: PH)
  Receive Date: 20231012
  Receipt Date: 20231127
  Transmission Date: 20240110
  Serious: Yes (Death)
  Sender: FDA-Public Use
  Company Number: PH-OTSUKA-2023_026494

PATIENT
  Sex: Female

DRUGS (1)
  1. TOLVAPTAN [Suspect]
     Active Substance: TOLVAPTAN
     Indication: Swelling
     Dosage: 15 MG, QD (1TAB)
     Route: 048

REACTIONS (2)
  - Cardiomegaly [Fatal]
  - Product use in unapproved indication [Unknown]
